FAERS Safety Report 17433523 (Version 1)
Quarter: 2020Q1

REPORT INFORMATION
  Report Type: Spontaneous
  Country: GB (occurrence: GB)
  Receive Date: 20200219
  Receipt Date: 20200219
  Transmission Date: 20200409
  Serious: Yes (Death)
  Sender: FDA-Public Use
  Company Number: GB-TEVA-2020-GB-1187410

PATIENT
  Age: 79 Year
  Sex: Male
  Weight: 69 kg

DRUGS (11)
  1. DONEPEZIL. [Suspect]
     Active Substance: DONEPEZIL
     Indication: COGNITIVE DISORDER
     Dosage: 5 MG
     Route: 048
     Dates: start: 20191228
  2. METFORMIN [Concomitant]
     Active Substance: METFORMIN HYDROCHLORIDE
     Indication: DIABETES MELLITUS INADEQUATE CONTROL
     Dosage: 1000 MG PER DAY
     Dates: start: 20190618
  3. COLECALCIFEROL [Concomitant]
     Active Substance: CHOLECALCIFEROL
  4. ATORVASTATIN [Concomitant]
     Active Substance: ATORVASTATIN
     Dosage: 40 MG PER DAY
  5. LUPRON DEPOT [Concomitant]
     Active Substance: LEUPROLIDE ACETATE
     Dosage: 11.25 MG
     Dates: start: 20191129
  6. BETAHISTINE [Concomitant]
     Active Substance: BETAHISTINE
     Dosage: 48 MG PER DAY
  7. LAXIDO [Concomitant]
     Active Substance: POLYETHYLENE GLYCOL 3350\POTASSIUM CHLORIDE\SODIUM BICARBONATE\SODIUM CHLORIDE
     Dosage: MAX 2 IN 24 HOURS, 1 DOSAGE FORM
  8. PARACETAMOL [Concomitant]
     Active Substance: ACETAMINOPHEN
     Dosage: MAX 4HRLY/4G/24H, 1 GM
  9. CASSIA [Concomitant]
  10. GAVISCON [Concomitant]
     Active Substance: ALUMINUM HYDROXIDE\MAGNESIUM CARBONATE
     Dates: end: 201912
  11. RISPERIDONE. [Concomitant]
     Active Substance: RISPERIDONE
     Indication: MEMORY IMPAIRMENT
     Dosage: 0.5MG MANE, 1MG EVENING, 3 MG PER DAY
     Dates: start: 20190418

REACTIONS (2)
  - Completed suicide [Fatal]
  - Suicidal ideation [Fatal]

NARRATIVE: CASE EVENT DATE: 20200105
